FAERS Safety Report 14163930 (Version 8)
Quarter: 2022Q3

REPORT INFORMATION
  Report Type: Report from Study
  Country: IL (occurrence: None)
  Receive Date: 20171107
  Receipt Date: 20220819
  Transmission Date: 20221026
  Serious: Yes (Other)
  Sender: FDA-Public Use
  Company Number: IL-ROCHE-2015121

PATIENT
  Age: 55 Year
  Sex: Female
  Weight: 84 kg

DRUGS (13)
  1. ATEZOLIZUMAB [Suspect]
     Active Substance: ATEZOLIZUMAB
     Indication: Metastatic malignant melanoma
     Dosage: ON 23/OCT/2017, DOSE OF LAST BLINDED ATEZOLIZUMAB ADMINISTERED PRIOR TO SAE ONSET
     Route: 042
     Dates: start: 20171023
  2. COBIMETINIB [Suspect]
     Active Substance: COBIMETINIB
     Indication: Metastatic malignant melanoma
     Dosage: ON 15/OCT/2017, DOSE OF LAST COBIMETINIB ADMINISTERED PRIOR TO SAE ONSET 20 MG?(3 TABLETS OF 20 MG)
     Route: 048
     Dates: start: 20170925
  3. VEMURAFENIB [Suspect]
     Active Substance: VEMURAFENIB
     Indication: Metastatic malignant melanoma
     Dosage: DATE OF MOST RECENT DOSE OF VEMURAFENIB PRIOR TO SAE ONSET 23/OCT/2017 (4DF)?4 DOSAGE FORMS (DF) TWI
     Route: 048
     Dates: start: 20170925
  4. AFLUMYCIN [Concomitant]
     Indication: Rash
     Dates: start: 20171009, end: 20171023
  5. CLOBETASOL [Concomitant]
     Active Substance: CLOBETASOL
     Indication: Rash
     Dates: start: 20171009, end: 20171023
  6. NEOBLOC [Concomitant]
     Indication: Hypertension
     Route: 048
  7. METFORMIN HYDROCHLORIDE [Concomitant]
     Active Substance: METFORMIN HYDROCHLORIDE
     Indication: Diabetes mellitus
     Route: 048
  8. ASPIRIN [Concomitant]
     Active Substance: ASPIRIN
     Indication: Myocardial ischaemia
     Route: 048
  9. LIPITOR [Concomitant]
     Active Substance: ATORVASTATIN CALCIUM
     Indication: Hyperlipidaemia
     Route: 048
  10. LOSARTAN POTASSIUM AND HYDROCHLOROTHIAZIDE [Concomitant]
     Active Substance: HYDROCHLOROTHIAZIDE\LOSARTAN POTASSIUM
     Indication: Myocardial ischaemia
     Route: 048
  11. CIPRALEX [Concomitant]
     Active Substance: ESCITALOPRAM OXALATE
     Indication: Mood swings
     Route: 048
     Dates: start: 201710
  12. IMODIUM [Concomitant]
     Active Substance: LOPERAMIDE HYDROCHLORIDE
     Indication: Diarrhoea
     Route: 048
  13. IMIPRAMINE [Concomitant]
     Active Substance: IMIPRAMINE
     Indication: Nausea
     Route: 048
     Dates: start: 20171121

REACTIONS (1)
  - Maculopathy [Recovered/Resolved]

NARRATIVE: CASE EVENT DATE: 20171026
